FAERS Safety Report 12935158 (Version 3)
Quarter: 2016Q4

REPORT INFORMATION
  Report Type: Report from Study
  Country: US (occurrence: US)
  Receive Date: 20161114
  Receipt Date: 20161122
  Transmission Date: 20170207
  Serious: Yes (Other)
  Sender: FDA-Public Use
  Company Number: US-ROCHE-1852991

PATIENT
  Age: 70 Year
  Sex: Female
  Weight: 65.83 kg

DRUGS (5)
  1. XOLAIR [Suspect]
     Active Substance: OMALIZUMAB
     Indication: URTICARIA
     Dosage: 2 VIALS EVERY 4 WEEKS
     Route: 058
     Dates: start: 201605
  2. XOLAIR [Suspect]
     Active Substance: OMALIZUMAB
     Indication: CHRONIC SPONTANEOUS URTICARIA
     Route: 058
     Dates: start: 201606
  3. PREDNISONE. [Concomitant]
     Active Substance: PREDNISONE
     Indication: URTICARIA
     Dosage: MAINTENANCE 10MG EVERY OTHER DAY ;ONGOING: YES
     Route: 048
  4. ZYRTEC [Concomitant]
     Active Substance: CETIRIZINE HYDROCHLORIDE
     Indication: HYPERSENSITIVITY
     Dosage: UP TO 40MG DAILY VARYING DOSES ;ONGOING: YES
     Route: 048
  5. TACROLIMUS. [Concomitant]
     Active Substance: TACROLIMUS
     Indication: LIVER TRANSPLANT
     Dosage: YES
     Route: 048

REACTIONS (3)
  - Drug ineffective [Unknown]
  - Anaphylactic reaction [Unknown]
  - Autoantibody positive [Not Recovered/Not Resolved]

NARRATIVE: CASE EVENT DATE: 201608
